FAERS Safety Report 24702820 (Version 2)
Quarter: 2024Q4

REPORT INFORMATION
  Report Type: Report from Study
  Country: CZ (occurrence: CZ)
  Receive Date: 20241205
  Receipt Date: 20241220
  Transmission Date: 20250115
  Serious: Yes (Other)
  Sender: TEVA
  Company Number: CZ-TEVA-VS-3269740

PATIENT
  Sex: Male

DRUGS (2)
  1. DOXORUBICIN [Suspect]
     Active Substance: DOXORUBICIN
     Indication: Squamous cell carcinoma of the cervix
     Dosage: FOR 4 CYCLES
     Route: 064
  2. CISPLATIN [Suspect]
     Active Substance: CISPLATIN
     Indication: Squamous cell carcinoma of the cervix
     Dosage: FOR 4 CYCLES
     Route: 064

REACTIONS (3)
  - Anaemia neonatal [Not Recovered/Not Resolved]
  - Foetal exposure during pregnancy [Unknown]
  - Live birth [Unknown]
